FAERS Safety Report 16891260 (Version 1)
Quarter: 2019Q4

REPORT INFORMATION
  Report Type: Report from Study
  Country: PE (occurrence: PE)
  Receive Date: 20191007
  Receipt Date: 20191007
  Transmission Date: 20200122
  Serious: Yes (Hospitalization)
  Sender: FDA-Public Use
  Company Number: PE-TAKEDA-2019TUS055415

PATIENT
  Weight: 72 kg

DRUGS (1)
  1. BORTEZOMIB. [Suspect]
     Active Substance: BORTEZOMIB
     Indication: PLASMA CELL MYELOMA
     Dosage: UNK
     Route: 065
     Dates: start: 20140401

REACTIONS (3)
  - Enterocolitis [Unknown]
  - Catheter site infection [Unknown]
  - Malaise [Unknown]
